FAERS Safety Report 4289761-2 (Version None)
Quarter: 2004Q1

REPORT INFORMATION
  Report Type: 
  Country: None (occurrence: None)
  Receive Date: 20040206
  Receipt Date: 20040128
  Transmission Date: 20041129
  Serious: Yes (Death, Life-Threatening)
  Sender: FDA-Public Use
  Company Number: UK048604

PATIENT
  Age: 43 Year
  Sex: Female

DRUGS (3)
  1. NEULASTA [Suspect]
     Indication: CHEMOTHERAPY
     Dosage: 6 MG
     Dates: start: 20030627
  2. CYCLOPHOSPHAMIDE [Suspect]
     Dosage: 1140 MG
     Dates: start: 20030626
  3. DOCETAXEL [Concomitant]

REACTIONS (2)
  - BONE MARROW DISORDER [None]
  - PANCYTOPENIA [None]
